FAERS Safety Report 16229102 (Version 1)
Quarter: 2019Q2

REPORT INFORMATION
  Report Type: Spontaneous
  Country: US (occurrence: US)
  Receive Date: 20190319
  Receipt Date: 20190319
  Transmission Date: 20190711
  Serious: Yes (Life-Threatening, Hospitalization, Other)
  Sender: FDA-Public Use
  Company Number: None

PATIENT
  Age: 58 Year
  Sex: Female
  Weight: 68.04 kg

DRUGS (1)
  1. WALGREENS ENTERIC COATED LOW DOSE DYE FREE ASPIRIN 81 [Suspect]
     Active Substance: ASPIRIN
     Indication: CARDIOVASCULAR EVENT PROPHYLAXIS
     Dosage: ?          QUANTITY:81 MG MILLIGRAM(S);?
     Route: 048
     Dates: start: 2015, end: 20151014

REACTIONS (10)
  - Syncope [None]
  - Adverse drug reaction [None]
  - Inflammatory marker increased [None]
  - Respiratory tract oedema [None]
  - Respiration abnormal [None]
  - Aphasia [None]
  - Product coating issue [None]
  - Fall [None]
  - Night sweats [None]
  - Product substitution issue [None]

NARRATIVE: CASE EVENT DATE: 20180709
